FAERS Safety Report 20195215 (Version 2)
Quarter: 2021Q4

REPORT INFORMATION
  Report Type: Spontaneous
  Country: CN (occurrence: CN)
  Receive Date: 20211216
  Receipt Date: 20211227
  Transmission Date: 20220303
  Serious: Yes (Other)
  Sender: FDA-Public Use
  Company Number: CN-BoehringerIngelheim-2021-BI-142475

PATIENT
  Age: 51 Year
  Sex: Female

DRUGS (6)
  1. GILOTRIF [Suspect]
     Active Substance: AFATINIB
     Indication: Non-small cell lung cancer
     Route: 048
     Dates: start: 20180224
  2. GILOTRIF [Suspect]
     Active Substance: AFATINIB
     Indication: EGFR gene mutation
  3. GILOTRIF [Suspect]
     Active Substance: AFATINIB
     Indication: Adenocarcinoma
  4. APATINIB [Suspect]
     Active Substance: APATINIB
     Indication: Non-small cell lung cancer
     Route: 048
     Dates: start: 20180524
  5. APATINIB [Suspect]
     Active Substance: APATINIB
     Indication: EGFR gene mutation
  6. APATINIB [Suspect]
     Active Substance: APATINIB
     Indication: Adenocarcinoma

REACTIONS (4)
  - Malignant neoplasm progression [Unknown]
  - Malignant neoplasm progression [Unknown]
  - Palmar-plantar erythrodysaesthesia syndrome [Unknown]
  - Therapy partial responder [Unknown]

NARRATIVE: CASE EVENT DATE: 20180101
